FAERS Safety Report 8800942 (Version 1)
Quarter: 2012Q4

REPORT INFORMATION
  Report Type: 
  Country: NL (occurrence: NL)
  Receive Date: 20120920
  Receipt Date: 20120920
  Transmission Date: 20130627
  Serious: Yes (Other)
  Sender: FDA-Public Use
  Company Number: NL-MYLANLABS-2012S1019017

PATIENT
  Age: 5 None
  Sex: Female

DRUGS (2)
  1. MIRTAZAPINE [Suspect]
     Indication: DEPRESSION
     Dosage: 1 dd 30mg
     Route: 065
  2. NITROFURANTOIN [Concomitant]
     Indication: PROPHYLAXIS
     Route: 065

REACTIONS (5)
  - Constipation [Not Recovered/Not Resolved]
  - Restless legs syndrome [Unknown]
  - Nightmare [Unknown]
  - Periorbital oedema [Unknown]
  - Mental impairment [Unknown]
